FAERS Safety Report 5486284-X (Version None)
Quarter: 2007Q3

REPORT INFORMATION
  Report Type: 
  Country: None (occurrence: None)
  Receive Date: 20070917
  Receipt Date: 20070605
  Transmission Date: 20080115
  Serious: Yes (Hospitalization)
  Sender: FDA-Public Use
  Company Number: S07-USA-02443-01

PATIENT
  Age: 29 Year
  Sex: Male
  Weight: 88.4061 kg

DRUGS (9)
  1. CELEXA [Suspect]
     Indication: ANXIETY
     Dosage: 60 MG QD PO
     Route: 048
     Dates: start: 20070511
  2. CELEXA [Suspect]
     Indication: MAJOR DEPRESSION
     Dosage: 60 MG QD PO
     Route: 048
     Dates: start: 20070511
  3. CELEXA [Suspect]
     Indication: PANIC DISORDER
     Dosage: 60 MG QD PO
     Route: 048
     Dates: start: 20070511
  4. BENTYL [Suspect]
     Indication: GASTRITIS
     Dosage: 30 MG QD
  5. WELLBUTRIN [Suspect]
     Indication: MAJOR DEPRESSION
     Dosage: 450 MG QD
  6. INDERAL [Concomitant]
  7. ZOCOR [Concomitant]
  8. CHLOR-TRIMETON [Concomitant]
  9. OMEPRAZOLE [Concomitant]

REACTIONS (12)
  - CONFUSIONAL STATE [None]
  - DELUSION [None]
  - DRUG INTERACTION [None]
  - EPISTAXIS [None]
  - FALL [None]
  - HALLUCINATION [None]
  - HYPERVENTILATION [None]
  - LOSS OF CONSCIOUSNESS [None]
  - PANIC REACTION [None]
  - PARAESTHESIA [None]
  - TACHYCARDIA [None]
  - TREMOR [None]
